FAERS Safety Report 5915101-6 (Version None)
Quarter: 2008Q4

REPORT INFORMATION
  Report Type: 
  Country: None (occurrence: None)
  Receive Date: 20081010
  Receipt Date: 20081006
  Transmission Date: 20090506
  Serious: Yes (Hospitalization)
  Sender: FDA-Public Use
  Company Number: B0533375A

PATIENT
  Age: 65 Year
  Sex: Female

DRUGS (2)
  1. LAPATINIB [Suspect]
     Indication: BREAST CANCER
     Dosage: 57750MG PER DAY
     Route: 048
     Dates: start: 20080605
  2. GEMCITABINE [Suspect]
     Indication: BREAST CANCER
     Dosage: 11200MG PER DAY
     Route: 042
     Dates: start: 20080605

REACTIONS (7)
  - BACK PAIN [None]
  - DYSPNOEA [None]
  - PNEUMONITIS [None]
  - PULMONARY EMBOLISM [None]
  - PYREXIA [None]
  - RESPIRATORY TRACT INFECTION [None]
  - WOUND INFECTION [None]
